FAERS Safety Report 4507181-X (Version None)
Quarter: 2004Q4

REPORT INFORMATION
  Report Type: 
  Country: None (occurrence: None)
  Receive Date: 20041025
  Receipt Date: 20040709
  Transmission Date: 20050328
  Serious: Yes (Hospitalization)
  Sender: FDA-Public Use
  Company Number: US-JNJFOC-20040505206

PATIENT
  Age: 73 Year
  Sex: Female

DRUGS (11)
  1. INFLIXIMAB (INFLIXIMAB, RECOMBINANT) LYOPHILIZED POWDER [Suspect]
     Indication: RHEUMATOID ARTHRITIS
     Dosage: INTRAVENOUS
     Route: 042
     Dates: start: 20010228
  2. INFLIXIMAB (INFLIXIMAB, RECOMBINANT) LYOPHILIZED POWDER [Suspect]
     Indication: RHEUMATOID ARTHRITIS
     Dosage: INTRAVENOUS
     Route: 042
     Dates: start: 20011201
  3. VALIUM [Concomitant]
  4. ALTACE (RAMIPRIL) [Concomitant]
  5. DIPYRIDAMOLE [Concomitant]
  6. CARBATROL [Concomitant]
  7. ZANTAC [Concomitant]
  8. SYNTHROID [Concomitant]
  9. OSCAL PLUS  D (CALCIUM D3 ^STADA^) [Concomitant]
  10. MAGNESIUM (MAGNESIUM) [Concomitant]
  11. GLUCOSAMINE/CHONDROITIN (GLUCOSAMINE W/CHONDROITIN SULFATES) [Concomitant]

REACTIONS (3)
  - ANAEMIA [None]
  - BRONCHITIS [None]
  - CHEST PAIN [None]
